FAERS Safety Report 10173916 (Version 1)
Quarter: 2014Q2

REPORT INFORMATION
  Report Type: Spontaneous
  Country: US (occurrence: None)
  Receive Date: 20140514
  Receipt Date: 20140514
  Transmission Date: 20141212
  Serious: No
  Sender: FDA-Public Use
  Company Number: None

PATIENT
  Age: 56 Year
  Sex: Female
  Weight: 63.5 kg

DRUGS (2)
  1. NEXIUM [Suspect]
     Indication: GASTROOESOPHAGEAL REFLUX DISEASE
     Dosage: 1 PILL
     Route: 048
  2. NEXIUM [Suspect]
     Indication: EROSIVE OESOPHAGITIS
     Dosage: 1 PILL
     Route: 048

REACTIONS (3)
  - Headache [None]
  - Clostridium difficile infection [None]
  - Constipation [None]
